FAERS Safety Report 16568297 (Version 1)
Quarter: 2019Q3

REPORT INFORMATION
  Report Type: Spontaneous
  Country: US (occurrence: US)
  Receive Date: 20190712
  Receipt Date: 20190712
  Transmission Date: 20191004
  Serious: Yes (Other)
  Sender: FDA-Public Use
  Company Number: US-OTSUKA-2019_025018

PATIENT
  Age: 70 Year
  Sex: Female

DRUGS (2)
  1. NUEDEXTA [Suspect]
     Active Substance: DEXTROMETHORPHAN HYDROBROMIDE\QUINIDINE SULFATE
     Indication: AFFECT LABILITY
     Dosage: 1 DF, BID (EVERY 12 HOURS)
     Route: 065
     Dates: end: 20190617
  2. HYDROMORPHONE [Concomitant]
     Active Substance: HYDROMORPHONE
     Indication: BACK PAIN
     Dosage: LOW DOSE AT NIGHT (STARTED 3-4 YEARS AGO)
     Route: 065

REACTIONS (10)
  - Mobility decreased [Recovered/Resolved]
  - Vomiting [Recovered/Resolved]
  - Skin haemorrhage [Recovered/Resolved]
  - Dizziness [Recovering/Resolving]
  - Epistaxis [Recovered/Resolved]
  - Quality of life decreased [Not Recovered/Not Resolved]
  - Malaise [Not Recovered/Not Resolved]
  - Depressed mood [Not Recovered/Not Resolved]
  - Abdominal pain upper [Recovered/Resolved]
  - Platelet count decreased [Unknown]

NARRATIVE: CASE EVENT DATE: 2018
